FAERS Safety Report 15489378 (Version 7)
Quarter: 2019Q2

REPORT INFORMATION
  Report Type: Spontaneous
  Country: US (occurrence: US)
  Receive Date: 20181011
  Receipt Date: 20190611
  Transmission Date: 20190711
  Serious: Yes (Other)
  Sender: FDA-Public Use
  Company Number: US-PFIZER INC-2018409188

PATIENT
  Age: 61 Year
  Sex: Female

DRUGS (1)
  1. IBRANCE [Suspect]
     Active Substance: PALBOCICLIB
     Indication: BREAST CANCER FEMALE
     Dosage: 125 MG, UNK
     Dates: end: 201904

REACTIONS (10)
  - Choking [Unknown]
  - White blood cell count decreased [Unknown]
  - Vomiting [Unknown]
  - Loss of personal independence in daily activities [Unknown]
  - Eating disorder [Unknown]
  - Decreased appetite [Unknown]
  - Neoplasm progression [Unknown]
  - Platelet count decreased [Unknown]
  - Parkinson^s disease [Unknown]
  - Weight decreased [Unknown]
